FAERS Safety Report 5777469-3 (Version None)
Quarter: 2008Q2

REPORT INFORMATION
  Report Type: 
  Country: None (occurrence: None)
  Receive Date: 20080618
  Receipt Date: 20080606
  Transmission Date: 20081010
  Serious: Yes (Other)
  Sender: FDA-Public Use
  Company Number: FR-ROCHE-569650

PATIENT
  Sex: Female

DRUGS (1)
  1. ISOTRETINOIN [Suspect]
     Indication: DRUG USE FOR UNKNOWN INDICATION
     Route: 065
     Dates: start: 20061101, end: 20070425

REACTIONS (1)
  - ILL-DEFINED DISORDER [None]
